FAERS Safety Report 5187208-5 (Version None)
Quarter: 2006Q4

REPORT INFORMATION
  Report Type: 
  Country: None (occurrence: None)
  Receive Date: 20061214
  Receipt Date: 20061201
  Transmission Date: 20070319
  Serious: Yes (Other)
  Sender: FDA-Public Use
  Company Number: 2006150370

PATIENT
  Age: 23 Year
  Sex: Female

DRUGS (1)
  1. DOXYCYCLINE [Suspect]
     Indication: MALARIA PROPHYLAXIS
     Dosage: 100 MG (100 MG, EVERY DAY), ORAL
     Route: 048
     Dates: start: 20061003, end: 20061014

REACTIONS (3)
  - EATING DISORDER [None]
  - GASTROOESOPHAGEAL REFLUX DISEASE [None]
  - OESOPHAGITIS [None]
